FAERS Safety Report 15378787 (Version 4)
Quarter: 2020Q1

REPORT INFORMATION
  Report Type: Spontaneous
  Country: US (occurrence: US)
  Receive Date: 20180913
  Receipt Date: 20200116
  Transmission Date: 20200409
  Serious: Yes (Hospitalization, Other)
  Sender: FDA-Public Use
  Company Number: US-PFIZER INC-2018367079

PATIENT
  Age: 60 Year
  Sex: Female
  Weight: 108.84 kg

DRUGS (3)
  1. IBRANCE [Suspect]
     Active Substance: PALBOCICLIB
     Indication: BREAST CANCER METASTATIC
     Dosage: 125 MG, CYCLIC (1-21 EVERY 28 DAYS)
     Dates: start: 20180328
  2. IBRANCE [Suspect]
     Active Substance: PALBOCICLIB
     Dosage: 75 MG, CYCLIC (1-21 EVERY 28 DAYS)
     Route: 048
     Dates: start: 20180325
  3. IBRANCE [Suspect]
     Active Substance: PALBOCICLIB
     Dosage: 125 MG, CYCLIC (D 1-21 Q28 DAYS)
     Route: 048
     Dates: start: 20180325

REACTIONS (9)
  - Suicidal ideation [Unknown]
  - Asthenia [Unknown]
  - Neoplasm progression [Unknown]
  - Eating disorder [Unknown]
  - Blood test abnormal [Unknown]
  - Malaise [Unknown]
  - Bacteraemia [Unknown]
  - Urinary tract infection [Unknown]
  - Disorientation [Unknown]

NARRATIVE: CASE EVENT DATE: 20180903
